FAERS Safety Report 6867652-8 (Version None)
Quarter: 2010Q3

REPORT INFORMATION
  Report Type: 
  Country: None (occurrence: None)
  Receive Date: 20100722
  Receipt Date: 20091217
  Transmission Date: 20110219
  Serious: No
  Sender: FDA-Public Use
  Company Number: US-BAUSCH-2009BL006666

PATIENT
  Age: 80 Year
  Sex: Female

DRUGS (6)
  1. OPCON-A [Suspect]
     Indication: EYE PRURITUS
     Route: 047
     Dates: start: 20091215, end: 20091215
  2. OPCON-A [Suspect]
     Route: 047
     Dates: start: 20091215, end: 20091215
  3. ATENOLOL [Concomitant]
     Indication: HYPERTENSION
     Route: 048
     Dates: start: 19890101
  4. NEXIUM [Concomitant]
     Indication: DYSPEPSIA
     Route: 048
  5. SIMVASTATIN [Concomitant]
     Indication: BLOOD CHOLESTEROL INCREASED
     Route: 048
  6. VITAMIN D [Concomitant]
     Indication: VITAMIN SUPPLEMENTATION
     Route: 048

REACTIONS (1)
  - VISUAL IMPAIRMENT [None]
